FAERS Safety Report 8614371-3 (Version None)
Quarter: 2012Q3

REPORT INFORMATION
  Report Type: 
  Country: None (occurrence: None)
  Receive Date: 20120823
  Receipt Date: 20120813
  Transmission Date: 20120928
  Serious: Yes (Hospitalization)
  Sender: FDA-Public Use
  Company Number: US-009507513-2012SP032813

PATIENT

DRUGS (3)
  1. RIBASPHERE [Suspect]
  2. VICTRELIS [Suspect]
     Indication: HEPATITIS C
     Dosage: 800 MG, TID
     Route: 048
     Dates: start: 20120504
  3. PEGASYS [Suspect]

REACTIONS (5)
  - NAUSEA [None]
  - INJECTION SITE IRRITATION [None]
  - INJECTION SITE RASH [None]
  - CHEST PAIN [None]
  - INJECTION SITE PRURITUS [None]
